FAERS Safety Report 23032311 (Version 1)
Quarter: 2023Q4

REPORT INFORMATION
  Report Type: Spontaneous
  Country: US (occurrence: None)
  Receive Date: 20231004
  Receipt Date: 20231004
  Transmission Date: 20240110
  Serious: No
  Sender: FDA-Public Use
  Company Number: None

PATIENT
  Age: 68 Year
  Sex: Female
  Weight: 63.5 kg

DRUGS (2)
  1. FORTEO [Suspect]
     Active Substance: TERIPARATIDE
     Indication: Osteoporosis
     Dosage: FREQUENCY : DAILY;?
     Route: 058
     Dates: start: 202301
  2. FORTEO [Suspect]
     Active Substance: TERIPARATIDE
     Indication: Bone disorder

REACTIONS (5)
  - Blood pressure fluctuation [None]
  - Cardiac disorder [None]
  - Gastric ulcer haemorrhage [None]
  - Weight increased [None]
  - Fluid retention [None]
